FAERS Safety Report 5152547-0 (Version None)
Quarter: 2006Q4

REPORT INFORMATION
  Report Type: 
  Country: None (occurrence: None)
  Receive Date: 20061116
  Receipt Date: 20061107
  Transmission Date: 20070319
  Serious: Yes (Death)
  Sender: FDA-Public Use
  Company Number: US-ROXANE LABORATORIES, INC-2006-DE-05869GD

PATIENT
  Age: 56 Year
  Sex: Male
  Weight: 70 kg

DRUGS (6)
  1. TRAZODONE HCL [Suspect]
  2. MORPHINE [Suspect]
  3. CYMBALTA [Suspect]
  4. FENTANYL [Suspect]
  5. DIPHENHYDRAMINE HCL [Suspect]
  6. GABAPENTIN [Suspect]

REACTIONS (2)
  - NARCOTIC INTOXICATION [None]
  - UNRESPONSIVE TO STIMULI [None]
